FAERS Safety Report 23827242 (Version 1)
Quarter: 2024Q2

REPORT INFORMATION
  Report Type: Spontaneous
  Country: DE (occurrence: DE)
  Receive Date: 20240507
  Receipt Date: 20240507
  Transmission Date: 20240715
  Serious: Yes (Hospitalization)
  Sender: FDA-Public Use
  Company Number: None

PATIENT
  Age: 48 Year
  Sex: Female
  Weight: 60 kg

DRUGS (6)
  1. DOXYCYCLINE HYCLATE [Suspect]
     Active Substance: DOXYCYCLINE HYCLATE
     Dosage: 1.6 G
     Route: 048
     Dates: start: 20031011, end: 20031011
  2. TAVOR (LORAZEPAM) [Suspect]
     Active Substance: LORAZEPAM
     Dosage: 10 DF, 1X/DAY
     Route: 048
     Dates: start: 20031011, end: 20031011
  3. ZOLOFT [Suspect]
     Active Substance: SERTRALINE HYDROCHLORIDE
     Route: 048
     Dates: start: 20031011, end: 20031011
  4. ALCOHOL [Suspect]
     Active Substance: ALCOHOL
     Dosage: 1, UNK
     Route: 048
     Dates: start: 20031011, end: 20031011
  5. AMITRIPTYLINE [Suspect]
     Active Substance: AMITRIPTYLINE
     Dosage: 750 MG
     Route: 048
     Dates: start: 20031011, end: 20031011
  6. LORATADINE [Suspect]
     Active Substance: LORATADINE
     Dosage: 100 MG
     Route: 048
     Dates: start: 20031011, end: 20031011

REACTIONS (2)
  - Intentional overdose [Unknown]
  - Somnolence [Unknown]

NARRATIVE: CASE EVENT DATE: 20031011
